FAERS Safety Report 9263266 (Version 2)
Quarter: 2013Q3

REPORT INFORMATION
  Report Type: Spontaneous
  Country: CH (occurrence: CH)
  Receive Date: 20130430
  Receipt Date: 20130820
  Transmission Date: 20140515
  Serious: Yes (Congenital Anomaly, Other)
  Sender: FDA-Public Use
  Company Number: CH-BAYER-2013-051683

PATIENT
  Age: 0 None
  Sex: Female
  Weight: 2.87 kg

DRUGS (2)
  1. MIRENA [Suspect]
     Dosage: UNK
     Route: 064
     Dates: start: 20120703
  2. MIRENA [Suspect]
     Dosage: UNK
     Route: 064
     Dates: start: 20120703

REACTIONS (4)
  - Gastrointestinal malformation [Recovering/Resolving]
  - Foetal exposure timing unspecified [Recovered/Resolved]
  - Oligohydramnios [Recovered/Resolved]
  - Premature baby [Recovered/Resolved]
